FAERS Safety Report 7503404-3 (Version None)
Quarter: 2011Q2

REPORT INFORMATION
  Report Type: 
  Country: None (occurrence: None)
  Receive Date: 20110525
  Receipt Date: 20110511
  Transmission Date: 20111010
  Serious: No
  Sender: FDA-Public Use
  Company Number: B0717854A

PATIENT
  Sex: Male
  Weight: 92 kg

DRUGS (2)
  1. SUSTIVA [Suspect]
     Indication: HIV INFECTION
     Dosage: 100ML AT NIGHT
     Route: 048
     Dates: start: 20060404
  2. COMBIVIR [Suspect]
     Indication: HIV INFECTION
     Route: 048
     Dates: start: 20060404

REACTIONS (1)
  - DEPRESSION [None]
